FAERS Safety Report 7907472-6 (Version None)
Quarter: 2011Q4

REPORT INFORMATION
  Report Type: 
  Country: None (occurrence: None)
  Receive Date: 20111110
  Receipt Date: 20111103
  Transmission Date: 20120403
  Serious: Yes (Other)
  Sender: FDA-Public Use
  Company Number: US-ELI_LILLY_AND_COMPANY-US201111002339

PATIENT
  Age: 55 Year
  Sex: Male

DRUGS (1)
  1. EFFIENT [Suspect]
     Dosage: 10 MG, QD
     Route: 048

REACTIONS (3)
  - CARDIAC PACEMAKER INSERTION [None]
  - POST PROCEDURAL HAEMORRHAGE [None]
  - HAEMATOMA [None]
